FAERS Safety Report 8066027-6 (Version None)
Quarter: 2012Q1

REPORT INFORMATION
  Report Type: 
  Country: None (occurrence: None)
  Receive Date: 20120124
  Receipt Date: 20120113
  Transmission Date: 20120608
  Serious: Yes (Hospitalization)
  Sender: FDA-Public Use
  Company Number: FR-NOVOPROD-343134

PATIENT
  Age: 60 Year
  Sex: Male

DRUGS (6)
  1. AMITRIPTYLINE HCL [Concomitant]
  2. VICTOZA [Suspect]
     Indication: TYPE 2 DIABETES MELLITUS
     Dosage: 1.8 MG, QD
     Route: 065
     Dates: end: 20111230
  3. DURAGESIC-100 [Concomitant]
  4. LYRICA [Concomitant]
  5. BISOPROLOL ALPHARMA [Concomitant]
  6. OMIX [Concomitant]

REACTIONS (5)
  - VOMITING [None]
  - WEIGHT DECREASED [None]
  - ABDOMINAL PAIN [None]
  - PANCREATITIS [None]
  - LIPASE INCREASED [None]
